FAERS Safety Report 17943777 (Version 1)
Quarter: 2020Q2

REPORT INFORMATION
  Report Type: Report from Study
  Country: US (occurrence: US)
  Receive Date: 20200625
  Receipt Date: 20200625
  Transmission Date: 20200714
  Serious: Yes (Hospitalization, Other)
  Sender: FDA-Public Use
  Company Number: US-B.I. PHARMACEUTICALS,INC./RIDGEFIELD-2020-BI-023198

PATIENT
  Sex: Male

DRUGS (1)
  1. OFEV [Suspect]
     Active Substance: NINTEDANIB
     Indication: IDIOPATHIC PULMONARY FIBROSIS
     Route: 048
     Dates: start: 20200416

REACTIONS (6)
  - Faeces discoloured [Unknown]
  - Diarrhoea [Unknown]
  - Abdominal pain upper [Unknown]
  - Haematochezia [Unknown]
  - Gastric haemorrhage [Unknown]
  - Stomach mass [Unknown]
